FAERS Safety Report 12263606 (Version 2)
Quarter: 2019Q4

REPORT INFORMATION
  Report Type: Spontaneous
  Country: US (occurrence: US)
  Receive Date: 20160413
  Receipt Date: 20191021
  Transmission Date: 20200122
  Serious: Yes (Other)
  Sender: FDA-Public Use
  Company Number: US-PFIZER INC-2016208477

PATIENT
  Age: 59 Year
  Sex: Male

DRUGS (4)
  1. BABY ASPIRIN [Concomitant]
     Active Substance: ASPIRIN
     Indication: CARDIOVASCULAR EVENT PROPHYLAXIS
     Dosage: UNK
     Dates: start: 2004
  2. VIAGRA [Suspect]
     Active Substance: SILDENAFIL CITRATE
     Dosage: 100 MG, 1/2 TABLET, SEVERAL TIMES PER MONTH
     Route: 048
     Dates: start: 20070803, end: 20140209
  3. CIALIS [Suspect]
     Active Substance: TADALAFIL
     Indication: ERECTILE DYSFUNCTION
     Dosage: 20 MG, 1X/DAY, SEVERAL TIMES PER MONTH
     Route: 048
     Dates: start: 20090720, end: 20090730
  4. VIAGRA [Suspect]
     Active Substance: SILDENAFIL CITRATE
     Indication: ERECTILE DYSFUNCTION
     Dosage: UNK, REGULARLY
     Route: 048
     Dates: start: 200708, end: 201402

REACTIONS (7)
  - Malignant melanoma in situ [Unknown]
  - Neoplasm progression [Unknown]
  - Emotional distress [Unknown]
  - Malignant melanoma stage III [Unknown]
  - Malignant melanoma stage IV [Unknown]
  - Anxiety [Unknown]
  - Malignant melanoma [Unknown]

NARRATIVE: CASE EVENT DATE: 201206
